FAERS Safety Report 8660499 (Version 2)
Quarter: 2012Q4

REPORT INFORMATION
  Report Type: 
  Country: CA (occurrence: CA)
  Receive Date: 20120711
  Receipt Date: 20121212
  Transmission Date: 20130627
  Serious: Yes (Hospitalization, Other)
  Sender: FDA-Public Use
  Company Number: CA-SANOFI-AVENTIS-2012SA048229

PATIENT
  Age: 62 Year
  Sex: Female
  Weight: 95.8 kg

DRUGS (5)
  1. TAXOTERE [Suspect]
     Indication: CARCINOMA BREAST
     Dosage: strength- 80 mg vial
     Route: 042
     Dates: start: 20091126, end: 20091217
  2. DEXAMETHASONE [Concomitant]
     Dosage: dosage: 8 mg po BID x 3 doses
     Route: 048
  3. GRANISETRON [Concomitant]
     Dosage: dosage: 2 mg po daily x 3
     Route: 048
  4. PERCOCET [Concomitant]
     Dosage: dose: 1-11
     Route: 048
  5. VENLAFAXINE [Concomitant]
     Route: 048

REACTIONS (5)
  - Bronchoscopy abnormal [Unknown]
  - Lung infiltration [Unknown]
  - Cough [Unknown]
  - Dyspnoea [Unknown]
  - Pneumonia [Unknown]
